FAERS Safety Report 6198115-3 (Version None)
Quarter: 2009Q2

REPORT INFORMATION
  Report Type: 
  Country: None (occurrence: None)
  Receive Date: 20090519
  Receipt Date: 20090511
  Transmission Date: 20091009
  Serious: Yes (Hospitalization, Other)
  Sender: FDA-Public Use
  Company Number: TPA2009A00999

PATIENT
  Age: 7 Decade
  Sex: Male

DRUGS (1)
  1. ULORIC [Suspect]
     Indication: GOUT
     Dosage: 40 MG, 1 IN 1 D, PER ORAL
     Route: 048
     Dates: start: 20090401, end: 20090101

REACTIONS (3)
  - HERPES ZOSTER [None]
  - INFECTION [None]
  - MENINGITIS [None]
